FAERS Safety Report 24754596 (Version 13)
Quarter: 2025Q2

REPORT INFORMATION
  Report Type: Spontaneous
  Country: US (occurrence: US)
  Receive Date: 20241219
  Receipt Date: 20250630
  Transmission Date: 20250716
  Serious: No
  Sender: PFIZER
  Company Number: US-PFIZER INC-202400320023

PATIENT
  Age: 13 Year
  Sex: Male

DRUGS (4)
  1. GENOTROPIN [Suspect]
     Active Substance: SOMATROPIN
  2. GENOTROPIN [Suspect]
     Active Substance: SOMATROPIN
  3. GENOTROPIN [Suspect]
     Active Substance: SOMATROPIN
     Dates: start: 202411
  4. GENOTROPIN [Suspect]
     Active Substance: SOMATROPIN

REACTIONS (6)
  - Product formulation issue [Unknown]
  - Intentional dose omission [Unknown]
  - Device leakage [Unknown]
  - Device deployment issue [Unknown]
  - Wrong technique in device usage process [Unknown]
  - Drug dose omission by device [Unknown]
